FAERS Safety Report 6106634-0 (Version None)
Quarter: 2009Q1

REPORT INFORMATION
  Report Type: 
  Country: None (occurrence: None)
  Receive Date: 20090304
  Receipt Date: 20090220
  Transmission Date: 20090719
  Serious: Yes (Death, Life-Threatening, Hospitalization)
  Sender: FDA-Public Use
  Company Number: 2006-01525

PATIENT
  Age: 69 Year
  Sex: Male
  Weight: 59 kg

DRUGS (6)
  1. VELCADE [Suspect]
     Indication: B-CELL LYMPHOMA
     Dosage: 3 MG, INTRAVENOUS; 2.20 MG, INTRAVENOUS
     Route: 042
     Dates: end: 20060309
  2. VELCADE [Suspect]
     Indication: B-CELL LYMPHOMA
     Dosage: 3 MG, INTRAVENOUS; 2.20 MG, INTRAVENOUS
     Route: 042
     Dates: start: 20051103
  3. CARBAMAZEPINE [Concomitant]
  4. DEPAKENE [Concomitant]
  5. VALACYCLOVIR HCL [Concomitant]
  6. BACTRIM (SULFAMETHOXAZOLE, TRIMETHOPRIM) SYRUP [Concomitant]

REACTIONS (24)
  - ACUTE PULMONARY OEDEMA [None]
  - AGITATION [None]
  - ALANINE AMINOTRANSFERASE INCREASED [None]
  - ANAEMIA [None]
  - ASPARTATE AMINOTRANSFERASE INCREASED [None]
  - BLOOD BILIRUBIN INCREASED [None]
  - BLOOD CREATININE INCREASED [None]
  - BLOOD PRESSURE DECREASED [None]
  - BLOOD UREA INCREASED [None]
  - CARDIOMEGALY [None]
  - CEREBRAL CALCIFICATION [None]
  - CONFUSIONAL STATE [None]
  - DEHYDRATION [None]
  - DISORIENTATION [None]
  - HEPATOMEGALY [None]
  - HYPERKALAEMIA [None]
  - HYPONATRAEMIA [None]
  - LEFT VENTRICULAR FAILURE [None]
  - LOSS OF CONSCIOUSNESS [None]
  - LUNG DISORDER [None]
  - LYMPHADENOPATHY [None]
  - OEDEMA PERIPHERAL [None]
  - PULMONARY HYPERTENSION [None]
  - THROMBOCYTOPENIA [None]
